FAERS Safety Report 21554925 (Version 2)
Quarter: 2022Q4

REPORT INFORMATION
  Report Type: Spontaneous
  Country: AT (occurrence: AT)
  Receive Date: 20221104
  Receipt Date: 20221110
  Transmission Date: 20230113
  Serious: Yes (Hospitalization)
  Sender: FDA-Public Use
  Company Number: AT-ARBOR PHARMACEUTICALS, LLC-AT-2022ARB002771

PATIENT
  Age: 76 Year
  Sex: Male

DRUGS (5)
  1. TRIPTODUR [Suspect]
     Active Substance: TRIPTORELIN
     Indication: Neoplasm prostate
     Dosage: STRENGTH: 11.25 MG (11.25 MG,3 MONTH)
     Route: 065
     Dates: start: 20221011
  2. TRIPTODUR [Suspect]
     Active Substance: TRIPTORELIN
  3. TRIPTODUR [Suspect]
     Active Substance: TRIPTORELIN
  4. MEPRIL [ENALAPRIL MALEATE] [Concomitant]
     Indication: Blood pressure abnormal
     Dosage: UNK
  5. SIMVASTATIN [Concomitant]
     Active Substance: SIMVASTATIN
     Indication: Blood cholesterol increased
     Dosage: UNK

REACTIONS (3)
  - Abdominal pain [Unknown]
  - Presyncope [Unknown]
  - Blood pressure increased [Unknown]
